FAERS Safety Report 7806481-5 (Version None)
Quarter: 2011Q4

REPORT INFORMATION
  Report Type: 
  Country: None (occurrence: None)
  Receive Date: 20111011
  Receipt Date: 20111001
  Transmission Date: 20120403
  Serious: Yes (Life-Threatening, Hospitalization)
  Sender: FDA-Public Use
  Company Number: CO-GENZYME-CLOF-1001845

PATIENT
  Age: 8 Year
  Sex: Male
  Weight: 19 kg

DRUGS (3)
  1. CYCLOSPORINE [Suspect]
     Indication: PRODUCT USED FOR UNKNOWN INDICATION
     Dosage: UNK
     Route: 065
  2. ETOPOSIDE [Suspect]
     Indication: PRODUCT USED FOR UNKNOWN INDICATION
     Dosage: UNK
     Route: 065
  3. CLOLAR [Suspect]
     Indication: PRODUCT USED FOR UNKNOWN INDICATION
     Dosage: 40 MG/M2, QDX5
     Route: 065
     Dates: start: 20110201

REACTIONS (7)
  - DYSURIA [None]
  - CULTURE URINE POSITIVE [None]
  - PYREXIA [None]
  - BACTERAEMIA [None]
  - STAPHYLOCOCCAL SEPSIS [None]
  - DIARRHOEA [None]
  - ESCHERICHIA TEST POSITIVE [None]
